FAERS Safety Report 9345933 (Version 1)
Quarter: 2013Q2

REPORT INFORMATION
  Report Type: Spontaneous
  Country: US (occurrence: US)
  Receive Date: 20130613
  Receipt Date: 20130613
  Transmission Date: 20140414
  Serious: No
  Sender: FDA-Public Use
  Company Number: US-BAYER-2013-070891

PATIENT
  Sex: Male

DRUGS (3)
  1. GADAVIST [Suspect]
     Indication: NUCLEAR MAGNETIC RESONANCE IMAGING
     Dosage: 10 ML, ONCE
     Dates: start: 20130607
  2. GADAVIST [Suspect]
     Indication: HEPATIC LESION
  3. GADAVIST [Suspect]
     Indication: RENAL INJURY

REACTIONS (1)
  - Feeling hot [None]
